FAERS Safety Report 4984761-9 (Version None)
Quarter: 2006Q2

REPORT INFORMATION
  Report Type: 
  Country: None (occurrence: None)
  Receive Date: 20060427
  Receipt Date: 20060418
  Transmission Date: 20061013
  Serious: Yes (Hospitalization)
  Sender: FDA-Public Use
  Company Number: US-BRISTOL-MYERS SQUIBB COMPANY-13350442

PATIENT
  Age: 43 Year
  Sex: Female

DRUGS (4)
  1. ORENCIA [Suspect]
     Indication: RHEUMATOID ARTHRITIS
     Route: 042
     Dates: start: 20050621
  2. METHOTREXATE [Concomitant]
     Dates: start: 20050201
  3. PREDNISONE [Concomitant]
     Dates: start: 20050421
  4. PROTONIX [Concomitant]
     Dates: start: 20051101

REACTIONS (2)
  - GASTRIC ULCER [None]
  - PANCREATITIS [None]
